FAERS Safety Report 15053647 (Version 1)
Quarter: 2018Q2

REPORT INFORMATION
  Report Type: Spontaneous
  Country: US (occurrence: US)
  Receive Date: 20180622
  Receipt Date: 20180622
  Transmission Date: 20180711
  Serious: Yes (Other)
  Sender: FDA-Public Use
  Company Number: US-AMGEN-USASP2015100640

PATIENT
  Age: 78 Year
  Sex: Female

DRUGS (5)
  1. NPLATE [Suspect]
     Active Substance: ROMIPLOSTIM
     Indication: IMMUNE THROMBOCYTOPENIC PURPURA
     Dosage: 10 MUG, QWK
     Route: 065
     Dates: start: 201302
  2. IMMUNOGLOBULIN I.V [Concomitant]
     Active Substance: HUMAN IMMUNOGLOBULIN G
     Indication: MEGAKARYOCYTES INCREASED
     Route: 042
  3. DANAZOL. [Concomitant]
     Active Substance: DANAZOL
     Dosage: UNK
     Dates: start: 2012
  4. PREDNISONE. [Concomitant]
     Active Substance: PREDNISONE
     Indication: THROMBOCYTOPENIA
  5. AZATHIOPRINE. [Concomitant]
     Active Substance: AZATHIOPRINE
     Dosage: UNK
     Dates: start: 201107

REACTIONS (4)
  - Platelet count abnormal [Recovered/Resolved]
  - Drug effect decreased [Unknown]
  - Hepatic enzyme increased [Unknown]
  - Fluid overload [Unknown]
